FAERS Safety Report 6333491-X (Version None)
Quarter: 2009Q3

REPORT INFORMATION
  Report Type: 
  Country: None (occurrence: None)
  Receive Date: 20090828
  Receipt Date: 20090818
  Transmission Date: 20100115
  Serious: Yes (Other)
  Sender: FDA-Public Use
  Company Number: DE-AMGEN-US362012

PATIENT
  Age: 57 Year
  Sex: Female

DRUGS (3)
  1. ENBREL [Suspect]
     Indication: RHEUMATOID ARTHRITIS
     Dosage: LYOPHILIZED, 25 MG TWO TIMES WEEKLY
     Route: 058
     Dates: start: 20040501
  2. ENBREL [Suspect]
     Dosage: PRE-FILLED SYRINGE, 25 MG TWO TIMES WEEKLY
     Route: 058
  3. ARAVA [Concomitant]
     Indication: RHEUMATOID ARTHRITIS
     Route: 048
     Dates: start: 20090101

REACTIONS (2)
  - BENIGN NEOPLASM [None]
  - PRECANCEROUS SKIN LESION [None]
